FAERS Safety Report 17707220 (Version 2)
Quarter: 2020Q2

REPORT INFORMATION
  Report Type: Spontaneous
  Country: US (occurrence: US)
  Receive Date: 20200424
  Receipt Date: 20200424
  Transmission Date: 20200714
  Serious: No
  Sender: FDA-Public Use
  Company Number: US-GALDERMA-US2020009353

PATIENT
  Age: 12 Year
  Sex: Female

DRUGS (3)
  1. DIFFERIN GEL [Suspect]
     Active Substance: ADAPALENE
     Indication: ACNE
     Dosage: 0.1%
     Route: 061
     Dates: start: 20200210, end: 20200213
  2. DIFFERIN GENTLE CLEANSER (COSMETICS) [Suspect]
     Active Substance: COSMETICS
     Indication: ACNE
     Route: 061
     Dates: start: 20200210, end: 20200213
  3. DIFFERIN OIL CONTROL MOISTURIZER SPF 30 [Suspect]
     Active Substance: AVOBENZONE\OCTISALATE\OCTOCRYLENE
     Indication: ACNE
     Route: 061
     Dates: start: 20200210, end: 20200213

REACTIONS (4)
  - Rash macular [Not Recovered/Not Resolved]
  - Dry skin [Not Recovered/Not Resolved]
  - Erythema [Not Recovered/Not Resolved]
  - Skin burning sensation [Not Recovered/Not Resolved]

NARRATIVE: CASE EVENT DATE: 20200212
